FAERS Safety Report 4294295-5 (Version None)
Quarter: 2004Q1

REPORT INFORMATION
  Report Type: 
  Country: None (occurrence: None)
  Receive Date: 20040212
  Receipt Date: 20040212
  Transmission Date: 20041129
  Serious: Yes (Hospitalization)
  Sender: FDA-Public Use
  Company Number: None

PATIENT
  Age: 48 Year
  Sex: Male
  Weight: 59.88 kg

DRUGS (6)
  1. INFED [Suspect]
     Indication: ANAEMIA
     Dosage: 25 MG TEST DOSE
     Dates: start: 20040201
  2. INFED [Suspect]
     Indication: ANAEMIA
     Dosage: 25 MG TEST DOSE
     Dates: start: 20040201
  3. AMBISOME [Concomitant]
  4. LANTUS INSULIN [Concomitant]
  5. NOVOLOG [Concomitant]
  6. INFED [Suspect]
     Indication: ANAEMIA
     Dosage: 25 MG TEST DOSE
     Dates: start: 20040201

REACTIONS (8)
  - AGITATION [None]
  - BLOOD GLUCOSE DECREASED [None]
  - BLOOD PRESSURE DECREASED [None]
  - CEREBRAL ISCHAEMIA [None]
  - CEREBROVASCULAR ACCIDENT [None]
  - DYSPNOEA [None]
  - HYPOXIC ENCEPHALOPATHY [None]
  - RESPIRATORY DISTRESS [None]
